FAERS Safety Report 7055666-7 (Version None)
Quarter: 2010Q4

REPORT INFORMATION
  Report Type: 
  Country: None (occurrence: None)
  Receive Date: 20101020
  Receipt Date: 20101020
  Transmission Date: 20110411
  Serious: No
  Sender: FDA-Public Use
  Company Number: None

PATIENT
  Sex: Male
  Weight: 78.4 kg

DRUGS (1)
  1. MULTIVITS W/MINERALS TAB/CAP [Suspect]
     Indication: MEDICAL DIET
     Dosage: TABLET DAILY PO
     Route: 048
     Dates: start: 20091218, end: 20100608

REACTIONS (3)
  - DIARRHOEA [None]
  - PRODUCT ODOUR ABNORMAL [None]
  - PRODUCT QUALITY ISSUE [None]
